FAERS Safety Report 4741116-X (Version None)
Quarter: 2005Q3

REPORT INFORMATION
  Report Type: 
  Country: None (occurrence: None)
  Receive Date: 20050803
  Receipt Date: 20041119
  Transmission Date: 20060218
  Serious: Yes (Other)
  Sender: FDA-Public Use
  Company Number: 2004-11-1592

PATIENT
  Age: 62 Year
  Sex: Female

DRUGS (2)
  1. INTRON A [Suspect]
     Indication: MALIGNANT MELANOMA
     Dosage: HIGH DOSE INTRAVENOUS
     Route: 042
     Dates: start: 20041001, end: 20041119
  2. TYLENOL [Concomitant]

REACTIONS (1)
  - CONVULSION [None]
